FAERS Safety Report 16185235 (Version 2)
Quarter: 2019Q3

REPORT INFORMATION
  Report Type: Report from Study
  Country: None (occurrence: US)
  Receive Date: 20190411
  Receipt Date: 20190704
  Transmission Date: 20191004
  Serious: Yes (Death, Hospitalization)
  Sender: FDA-Public Use
  Company Number: US-ABBVIE-19K-163-2692460-00

PATIENT
  Sex: Male

DRUGS (7)
  1. VENCLEXTA [Suspect]
     Active Substance: VENETOCLAX
     Indication: NATURAL KILLER-CELL LYMPHOBLASTIC LYMPHOMA
     Dosage: WEEK 1:20MG
     Route: 048
     Dates: start: 20190223, end: 201903
  2. POTASSIUM CHLORIDE ER [Concomitant]
     Active Substance: POTASSIUM CHLORIDE
     Indication: PRODUCT USED FOR UNKNOWN INDICATION
     Dosage: 20 MEQ
     Route: 048
  3. FUROSEMIDE. [Concomitant]
     Active Substance: FUROSEMIDE
     Indication: PRODUCT USED FOR UNKNOWN INDICATION
     Route: 048
  4. VENCLEXTA [Suspect]
     Active Substance: VENETOCLAX
     Dosage: WEEK 3:100MG
     Route: 048
     Dates: start: 201903, end: 201903
  5. VENCLEXTA [Suspect]
     Active Substance: VENETOCLAX
     Dosage: WEEK 4:200MG
     Route: 048
     Dates: start: 201903, end: 201903
  6. VENCLEXTA [Suspect]
     Active Substance: VENETOCLAX
     Indication: T-CELL LYMPHOMA
     Dosage: WEEK 2:50MG
     Route: 048
     Dates: start: 201903, end: 201903
  7. VENCLEXTA [Suspect]
     Active Substance: VENETOCLAX
     Dosage: WEEK 5:400MG
     Route: 048
     Dates: start: 201903

REACTIONS (3)
  - Hospitalisation [Unknown]
  - Myocardial infarction [Fatal]
  - Intentional product use issue [Unknown]

NARRATIVE: CASE EVENT DATE: 2019
